FAERS Safety Report 15474973 (Version 1)
Quarter: 2018Q4

REPORT INFORMATION
  Report Type: Spontaneous
  Country: US (occurrence: US)
  Receive Date: 20181008
  Receipt Date: 20181008
  Transmission Date: 20190205
  Serious: No
  Sender: FDA-Public Use
  Company Number: US-BAUSCH-BL-2018-026281

PATIENT
  Sex: Female

DRUGS (2)
  1. ELIDEL [Suspect]
     Active Substance: PIMECROLIMUS
     Route: 061
     Dates: start: 2018
  2. ELIDEL [Suspect]
     Active Substance: PIMECROLIMUS
     Indication: DERMATITIS
     Route: 061
     Dates: start: 2018, end: 2018

REACTIONS (3)
  - Symptom recurrence [Unknown]
  - Treatment noncompliance [Unknown]
  - Dermatitis [Unknown]

NARRATIVE: CASE EVENT DATE: 2018
